FAERS Safety Report 7758578-6 (Version None)
Quarter: 2011Q3

REPORT INFORMATION
  Report Type: 
  Country: None (occurrence: None)
  Receive Date: 20110919
  Receipt Date: 20110906
  Transmission Date: 20111222
  Serious: Yes (Other)
  Sender: FDA-Public Use
  Company Number: CA-ELI_LILLY_AND_COMPANY-CA201109001320

PATIENT
  Sex: Female

DRUGS (8)
  1. ZYPREXA ZYDIS [Suspect]
     Dosage: 10 MG, QD
  2. BENZTROPINE MESYLATE [Concomitant]
  3. SEROQUEL [Concomitant]
  4. ZYPREXA [Suspect]
     Dosage: 5 MG, QD
  5. ZYPREXA [Suspect]
     Dosage: 2.5 MG, QD
  6. ZYPREXA [Suspect]
     Dosage: 10 MG, QD
  7. CLOPIXOL [Concomitant]
  8. RISPERDAL [Concomitant]

REACTIONS (4)
  - HEPATITIS B [None]
  - HYPERGLYCAEMIA [None]
  - BLOOD TRIGLYCERIDES INCREASED [None]
  - BLOOD CHOLESTEROL INCREASED [None]
